FAERS Safety Report 10133580 (Version 5)
Quarter: 2014Q2

REPORT INFORMATION
  Report Type: Spontaneous
  Country: US (occurrence: US)
  Receive Date: 20140428
  Receipt Date: 20140612
  Transmission Date: 20141212
  Serious: Yes (Hospitalization)
  Sender: FDA-Public Use
  Company Number: US-GLAXOSMITHKLINE-A1070954A

PATIENT
  Age: 82 Year
  Sex: Male

DRUGS (1)
  1. PROMACTA [Suspect]
     Indication: PLATELET COUNT DECREASED
     Dosage: 50MG UNKNOWN
     Route: 048
     Dates: start: 20111026

REACTIONS (3)
  - Investigation [Unknown]
  - Drug ineffective [Unknown]
  - Rehabilitation therapy [Unknown]
